FAERS Safety Report 9903776 (Version 3)
Quarter: 2014Q2

REPORT INFORMATION
  Report Type: Spontaneous
  Country: DK (occurrence: DK)
  Receive Date: 20140218
  Receipt Date: 20140604
  Transmission Date: 20141212
  Serious: Yes (Congenital Anomaly, Other)
  Sender: FDA-Public Use
  Company Number: DK-PFIZER INC-2014040685

PATIENT
  Sex: Female
  Weight: 4.5 kg

DRUGS (4)
  1. MINPROSTIN [Suspect]
     Indication: LABOUR INDUCTION
     Dosage: 3 MG, TWICE
     Route: 064
     Dates: start: 20000221, end: 20000221
  2. MINPROSTIN [Suspect]
     Dosage: 3 MG, TWICE
     Route: 064
     Dates: start: 20000222, end: 20000222
  3. MINPROSTIN [Suspect]
     Dosage: 3 MG, ONCE
     Route: 064
     Dates: start: 20000224, end: 20000224
  4. SYNTOCINON [Suspect]
     Indication: LABOUR INDUCTION
     Dosage: STRENGTH: 10 IE/ML
     Route: 064
     Dates: start: 20000224, end: 20000225

REACTIONS (6)
  - Maternal exposure during pregnancy [Recovered/Resolved]
  - Neonatal hypoxia [Recovered/Resolved]
  - Brain injury [Not Recovered/Not Resolved]
  - Autism [Not Recovered/Not Resolved]
  - Mental retardation [Not Recovered/Not Resolved]
  - Speech disorder [Not Recovered/Not Resolved]
